FAERS Safety Report 16334207 (Version 1)
Quarter: 2019Q2

REPORT INFORMATION
  Report Type: Spontaneous
  Country: US (occurrence: US)
  Receive Date: 20190520
  Receipt Date: 20190520
  Transmission Date: 20190711
  Serious: Yes (Hospitalization, Other)
  Sender: FDA-Public Use
  Company Number: US-PFIZER INC-2019211095

PATIENT
  Sex: Female

DRUGS (2)
  1. SOLU-CORTEF [Suspect]
     Active Substance: HYDROCORTISONE SODIUM SUCCINATE
     Indication: ADRENAL DISORDER
     Dosage: 100 MG, DAILY
  2. SOLU-CORTEF [Suspect]
     Active Substance: HYDROCORTISONE SODIUM SUCCINATE
     Indication: ADRENAL INSUFFICIENCY
     Dosage: 50 MG, UNK
     Route: 042

REACTIONS (7)
  - Tremor [Unknown]
  - Drug ineffective [Unknown]
  - Apparent death [Unknown]
  - Vision blurred [Unknown]
  - Blood pressure abnormal [Unknown]
  - Cardiovascular insufficiency [Unknown]
  - Product storage error [Unknown]
